FAERS Safety Report 21310967 (Version 1)
Quarter: 2022Q3

REPORT INFORMATION
  Report Type: Spontaneous
  Country: US (occurrence: None)
  Receive Date: 20220909
  Receipt Date: 20220909
  Transmission Date: 20221027
  Serious: No
  Sender: FDA-Public Use
  Company Number: US-FARMAPROD-202112-2265

PATIENT
  Age: 78 Year
  Sex: Female

DRUGS (17)
  1. OXERVATE [Suspect]
     Active Substance: CENEGERMIN-BKBJ
     Indication: Neurotrophic keratopathy
     Route: 047
     Dates: start: 20211202, end: 20211215
  2. TIMOLOL MALEATE [Concomitant]
     Active Substance: TIMOLOL MALEATE
  3. CILOXAN [Concomitant]
     Active Substance: CIPROFLOXACIN HYDROCHLORIDE
  4. LATANOPROST [Concomitant]
     Active Substance: LATANOPROST
  5. PREDNISOLONE [Concomitant]
     Active Substance: PREDNISOLONE
     Dosage: 15 MG/5 ML
  6. LEVOTHYROXINE [Concomitant]
     Active Substance: LEVOTHYROXINE
  7. LANTUS [Concomitant]
     Active Substance: INSULIN GLARGINE
     Dosage: 100/ ML
  8. LYRICA [Concomitant]
     Active Substance: PREGABALIN
  9. LISINOPRIL [Concomitant]
     Active Substance: LISINOPRIL
  10. NOVOLOG MIX 70/30 [Concomitant]
     Active Substance: INSULIN ASPART
     Dosage: 70-30/ ML
  11. ALTACE [Concomitant]
     Active Substance: RAMIPRIL
  12. VITAMIN D3 [Concomitant]
     Active Substance: CHOLECALCIFEROL
  13. URSODIOL [Concomitant]
     Active Substance: URSODIOL
  14. ACYCLOVIR [Concomitant]
     Active Substance: ACYCLOVIR
  15. PREDNISONE [Concomitant]
     Active Substance: PREDNISONE
  16. PRED FORTE [Concomitant]
     Active Substance: PREDNISOLONE ACETATE
  17. UNSPECIFIED INGREDIENT [Concomitant]
     Active Substance: UNSPECIFIED INGREDIENT
     Route: 047

REACTIONS (5)
  - Ocular hyperaemia [Unknown]
  - Eye irritation [Unknown]
  - Strabismus [Unknown]
  - Corneal deposits [Unknown]
  - Product administration error [Unknown]

NARRATIVE: CASE EVENT DATE: 20220207
